FAERS Safety Report 20316136 (Version 2)
Quarter: 2022Q1

REPORT INFORMATION
  Report Type: Spontaneous
  Country: IN (occurrence: IN)
  Receive Date: 20220110
  Receipt Date: 20220304
  Transmission Date: 20220423
  Serious: Yes (Hospitalization, Other)
  Sender: FDA-Public Use
  Company Number: IN-SUN PHARMACEUTICAL INDUSTRIES LTD-2021R1-319789

PATIENT
  Age: 23 Year
  Sex: Female

DRUGS (1)
  1. CLOZAPINE [Suspect]
     Active Substance: CLOZAPINE
     Indication: Schizophrenia
     Dosage: 300 MILLIGRAM, DAILY/100 TABLETS
     Route: 065

REACTIONS (6)
  - Overdose [Unknown]
  - Suicide attempt [Unknown]
  - Somnolence [Recovering/Resolving]
  - Generalised tonic-clonic seizure [Recovering/Resolving]
  - Tachycardia [Recovering/Resolving]
  - Blood pressure decreased [Recovering/Resolving]
